FAERS Safety Report 16330119 (Version 3)
Quarter: 2019Q4

REPORT INFORMATION
  Report Type: Spontaneous
  Country: US (occurrence: US)
  Receive Date: 20190520
  Receipt Date: 20191106
  Transmission Date: 20200122
  Serious: Yes (Hospitalization, Other)
  Sender: FDA-Public Use
  Company Number: US-GLAXOSMITHKLINE-US2019AMR086870

PATIENT
  Age: 74 Year
  Sex: Female

DRUGS (2)
  1. ADVAIR DISKUS [Suspect]
     Active Substance: FLUTICASONE PROPIONATE\SALMETEROL XINAFOATE
     Indication: PRODUCT USED FOR UNKNOWN INDICATION
     Dosage: UNK (STARTED MORE THAN 3 YEAS AGO)
     Route: 055
     Dates: start: 2011
  2. ADVAIR DISKUS [Suspect]
     Active Substance: FLUTICASONE PROPIONATE\SALMETEROL XINAFOATE
     Dosage: UNK
     Route: 055
     Dates: start: 2014

REACTIONS (14)
  - Surgery [Unknown]
  - Spinal fracture [Unknown]
  - Fall [Unknown]
  - Cardiac failure congestive [Unknown]
  - Upper limb fracture [Unknown]
  - Hip fracture [Unknown]
  - Emphysema [Unknown]
  - Musculoskeletal pain [Unknown]
  - Lung disorder [Unknown]
  - Pneumonia [Recovered/Resolved]
  - Pleural effusion [Unknown]
  - Dyspnoea exertional [Unknown]
  - Chronic obstructive pulmonary disease [Unknown]
  - Back pain [Unknown]

NARRATIVE: CASE EVENT DATE: 20181031
